FAERS Safety Report 20478437 (Version 1)
Quarter: 2022Q1

REPORT INFORMATION
  Report Type: Spontaneous
  Country: SE (occurrence: SE)
  Receive Date: 20220216
  Receipt Date: 20220216
  Transmission Date: 20220423
  Serious: Yes (Hospitalization)
  Sender: FDA-Public Use
  Company Number: None

PATIENT
  Age: 45 Year
  Sex: Female
  Weight: 54 kg

DRUGS (2)
  1. LISINOPRIL [Suspect]
     Active Substance: LISINOPRIL
     Indication: Blood pressure management
     Dosage: SPECIFIED DOSAGE: ^5^,LISINOPRIL ACTAVIS 5 MG TABLETT
     Route: 065
     Dates: start: 2016
  2. METOPROLOL [Suspect]
     Active Substance: METOPROLOL
     Indication: Myocardial infarction
     Dosage: METOPROLOL ORION 50 MG PROLONGED-RELEASE TABLET,UNIT DOSE:50MG
     Route: 065
     Dates: start: 2014, end: 2021

REACTIONS (3)
  - Palpitations [Recovering/Resolving]
  - Nightmare [Recovering/Resolving]
  - Peripheral coldness [Recovering/Resolving]

NARRATIVE: CASE EVENT DATE: 20180830
